FAERS Safety Report 7552953-0 (Version None)
Quarter: 2011Q2

REPORT INFORMATION
  Report Type: 
  Country: None (occurrence: None)
  Receive Date: 20110616
  Receipt Date: 20110309
  Transmission Date: 20111010
  Serious: No
  Sender: FDA-Public Use
  Company Number: US-ASTRAZENECA-2011SE13312

PATIENT
  Age: 39 Year
  Sex: Female
  Weight: 136.1 kg

DRUGS (1)
  1. FASLODEX [Suspect]
     Dosage: 2 DOSES OF 250 MG
     Route: 030

REACTIONS (2)
  - INCORRECT DOSE ADMINISTERED [None]
  - INJECTION SITE EXTRAVASATION [None]
